FAERS Safety Report 16875455 (Version 1)
Quarter: 2019Q4

REPORT INFORMATION
  Report Type: Spontaneous
  Country: US (occurrence: US)
  Receive Date: 20191002
  Receipt Date: 20191002
  Transmission Date: 20200122
  Serious: No
  Sender: FDA-Public Use
  Company Number: US-ASTRAZENECA-2019SF36372

PATIENT
  Sex: Male

DRUGS (9)
  1. SYMBICORT [Suspect]
     Active Substance: BUDESONIDE\FORMOTEROL FUMARATE DIHYDRATE
     Dosage: 80/4.5 INHALER
     Route: 055
  2. SYNTHROID [Concomitant]
     Active Substance: LEVOTHYROXINE SODIUM
  3. TERACIN [Concomitant]
  4. ELIQUEST [Concomitant]
  5. LOSARTIN [Concomitant]
     Active Substance: LOSARTAN
  6. DILTIAZEM CD [Concomitant]
     Active Substance: DILTIAZEM
     Dosage: 240.0MG UNKNOWN
  7. OMNEPRAZOLE [Suspect]
     Active Substance: OMEPRAZOLE
     Dosage: 40.0MG UNKNOWN
     Route: 048
  8. METOPROLOL TARNATE [Suspect]
     Active Substance: METOPROLOL TARTRATE
     Route: 065
  9. HYDROCHLOROTHIAZIDE. [Concomitant]
     Active Substance: HYDROCHLOROTHIAZIDE
     Dosage: AT NIGHT

REACTIONS (2)
  - Product dose omission [Unknown]
  - Hair growth abnormal [Unknown]
